FAERS Safety Report 6283035-6 (Version None)
Quarter: 2009Q3

REPORT INFORMATION
  Report Type: 
  Country: None (occurrence: None)
  Receive Date: 20090724
  Receipt Date: 20090715
  Transmission Date: 20100115
  Serious: Yes (Hospitalization)
  Sender: FDA-Public Use
  Company Number: US-ELI_LILLY_AND_COMPANY-US200907003533

PATIENT
  Sex: Female

DRUGS (1)
  1. GEMZAR [Suspect]
     Dates: start: 20080101

REACTIONS (4)
  - BLISTER [None]
  - HAEMOLYTIC URAEMIC SYNDROME [None]
  - HEADACHE [None]
  - THROMBOTIC THROMBOCYTOPENIC PURPURA [None]
